FAERS Safety Report 17878362 (Version 1)
Quarter: 2020Q2

REPORT INFORMATION
  Report Type: Spontaneous
  Country: JP (occurrence: JP)
  Receive Date: 20200610
  Receipt Date: 20200610
  Transmission Date: 20200714
  Serious: Yes (Other)
  Sender: FDA-Public Use
  Company Number: JP-ROCHE-2604850

PATIENT
  Age: 72 Year
  Sex: Female

DRUGS (1)
  1. ALECENSA [Suspect]
     Active Substance: ALECTINIB HYDROCHLORIDE
     Indication: NON-SMALL CELL LUNG CANCER
     Route: 048
     Dates: start: 20200512

REACTIONS (4)
  - Hepatic function abnormal [Unknown]
  - Constipation [Unknown]
  - Taste disorder [Unknown]
  - Cytopenia [Unknown]

NARRATIVE: CASE EVENT DATE: 20200514
